FAERS Safety Report 9924402 (Version 1)
Quarter: 2014Q1

REPORT INFORMATION
  Report Type: Report from Study
  Country: US (occurrence: US)
  Receive Date: 20140226
  Receipt Date: 20140226
  Transmission Date: 20141002
  Serious: Yes (Other)
  Sender: FDA-Public Use
  Company Number: US-ROCHE-1338278

PATIENT
  Sex: Female

DRUGS (10)
  1. LUCENTIS [Suspect]
     Indication: RETINAL VEIN OCCLUSION
     Route: 050
  2. LUCENTIS [Suspect]
     Indication: RETINAL OEDEMA
     Route: 050
     Dates: start: 20110821
  3. LUCENTIS [Suspect]
     Route: 050
     Dates: start: 20110720
  4. LUCENTIS [Suspect]
     Route: 050
     Dates: start: 20110816
  5. LUCENTIS [Suspect]
     Route: 050
     Dates: start: 20110913
  6. LUCENTIS [Suspect]
     Route: 050
     Dates: start: 20111018
  7. LUCENTIS [Suspect]
     Route: 050
     Dates: start: 20111122
  8. LUCENTIS [Suspect]
     Route: 050
     Dates: start: 20111220
  9. LUCENTIS [Suspect]
     Route: 050
     Dates: start: 20120117
  10. DUREZOL [Concomitant]
     Dosage: OD
     Route: 065

REACTIONS (10)
  - Eye pruritus [Unknown]
  - Macular oedema [Unknown]
  - Retinal exudates [Unknown]
  - Cataract nuclear [Unknown]
  - Vitreous detachment [Unknown]
  - Retinal haemorrhage [Unknown]
  - Retinal vein occlusion [Unknown]
  - Visual impairment [Unknown]
  - Retinopathy [Unknown]
  - Off label use [Unknown]
